FAERS Safety Report 4557004-8 (Version None)
Quarter: 2005Q1

REPORT INFORMATION
  Report Type: 
  Country: None (occurrence: None)
  Receive Date: 20050118
  Receipt Date: 20050111
  Transmission Date: 20050727
  Serious: Yes (Death)
  Sender: FDA-Public Use
  Company Number: 163-20785-04110481

PATIENT
  Age: 82 Year
  Sex: Male

DRUGS (1)
  1. THALOMID [Suspect]
     Indication: MYELOPROLIFERATIVE DISORDER
     Dosage: 50 MG DAILY ORAL
     Route: 048
     Dates: start: 20040427, end: 20040701

REACTIONS (1)
  - LEUKAEMIA MONOCYTIC [None]
